FAERS Safety Report 17270411 (Version 1)
Quarter: 2020Q1

REPORT INFORMATION
  Report Type: Spontaneous
  Country: FI (occurrence: FI)
  Receive Date: 20200114
  Receipt Date: 20200114
  Transmission Date: 20200409
  Serious: Yes (Hospitalization)
  Sender: FDA-Public Use
  Company Number: FI-MYLANLABS-2020M1003968

PATIENT
  Age: 47 Year
  Sex: Female

DRUGS (3)
  1. TOPIMAX                            /01201701/ [Concomitant]
     Active Substance: TOPIRAMATE
     Dosage: 600 MILLIGRAM, QD
  2. OLANZAPINE. [Suspect]
     Active Substance: OLANZAPINE
     Indication: DELUSIONAL DISORDER, UNSPECIFIED TYPE
     Dosage: 30 MILLIGRAM, QD
     Dates: start: 2019
  3. NEUROTOL                           /00052501/ [Concomitant]
     Active Substance: CARBAMAZEPINE
     Dosage: 1000 MILLIGRAM, QD

REACTIONS (2)
  - Drug ineffective [Unknown]
  - Hospitalisation [Unknown]
